FAERS Safety Report 25851095 (Version 1)
Quarter: 2025Q3

REPORT INFORMATION
  Report Type: Spontaneous
  Country: JP (occurrence: JP)
  Receive Date: 20250926
  Receipt Date: 20250926
  Transmission Date: 20251021
  Serious: Yes (Life-Threatening, Hospitalization, Other)
  Sender: RELIANCE GENEMEDIX
  Company Number: JP-Reliance-000492

PATIENT
  Age: 65 Year
  Sex: Male

DRUGS (1)
  1. CAPECITABINE [Suspect]
     Active Substance: CAPECITABINE
     Indication: Colorectal cancer stage II
     Route: 048

REACTIONS (3)
  - Aortic dissection [Recovered/Resolved]
  - Vascular injury [Recovered/Resolved]
  - Hypertension [Recovered/Resolved]
